FAERS Safety Report 11521380 (Version 1)
Quarter: 2015Q3

REPORT INFORMATION
  Report Type: Spontaneous
  Country: US (occurrence: US)
  Receive Date: 20150918
  Receipt Date: 20150918
  Transmission Date: 20151125
  Serious: No
  Sender: FDA-Public Use
  Company Number: US-ROCHE-748923

PATIENT
  Sex: Female

DRUGS (2)
  1. PEGASYS [Suspect]
     Active Substance: PEGINTERFERON ALFA-2A
     Indication: HEPATITIS C
     Route: 065
  2. RIBAVIRIN. [Suspect]
     Active Substance: RIBAVIRIN
     Indication: HEPATITIS C
     Route: 065

REACTIONS (8)
  - Red blood cell count decreased [Unknown]
  - Blood disorder [Unknown]
  - Asthenia [Unknown]
  - Weight decreased [Unknown]
  - Crying [Unknown]
  - White blood cell count decreased [Unknown]
  - Nausea [Unknown]
  - Constipation [Unknown]
